FAERS Safety Report 13194308 (Version 1)
Quarter: 2017Q1

REPORT INFORMATION
  Report Type: Spontaneous
  Country: US (occurrence: US)
  Receive Date: 20170207
  Receipt Date: 20170207
  Transmission Date: 20170428
  Serious: No
  Sender: FDA-Public Use
  Company Number: US-JAZZ-2016-US-023193

PATIENT
  Sex: Female

DRUGS (13)
  1. FIORICET [Concomitant]
     Active Substance: ACETAMINOPHEN\BUTALBITAL\CAFFEINE
  2. PHENAZOPYRIDINE. [Concomitant]
     Active Substance: PHENAZOPYRIDINE
  3. XYREM [Suspect]
     Active Substance: SODIUM OXYBATE
     Dosage: 3 G, BID
     Route: 048
     Dates: start: 2016
  4. XYREM [Suspect]
     Active Substance: SODIUM OXYBATE
     Indication: NARCOLEPSY
     Dosage: 2.25 G, BID
     Route: 048
     Dates: start: 201611, end: 2016
  5. CLONAZEPAM. [Concomitant]
     Active Substance: CLONAZEPAM
  6. ORTHO TRI CYCLEN LO [Concomitant]
     Active Substance: ETHINYL ESTRADIOL\NORGESTIMATE
  7. VALIUM [Concomitant]
     Active Substance: DIAZEPAM
  8. VOLTAREN [Concomitant]
     Active Substance: DICLOFENAC SODIUM
  9. LORATADINE. [Concomitant]
     Active Substance: LORATADINE
  10. VALTREX [Concomitant]
     Active Substance: VALACYCLOVIR HYDROCHLORIDE
  11. XANAX [Concomitant]
     Active Substance: ALPRAZOLAM
  12. ZOVIRAX [Concomitant]
     Active Substance: ACYCLOVIR
  13. TEMAZEPAM. [Concomitant]
     Active Substance: TEMAZEPAM

REACTIONS (9)
  - Dyspnoea [Unknown]
  - Condition aggravated [Not Recovered/Not Resolved]
  - Unevaluable event [Unknown]
  - Anxiety [Unknown]
  - Cystitis interstitial [Not Recovered/Not Resolved]
  - Inappropriate schedule of drug administration [Unknown]
  - Pelvic floor dyssynergia [Not Recovered/Not Resolved]
  - Skin burning sensation [Unknown]
  - Chest discomfort [Unknown]

NARRATIVE: CASE EVENT DATE: 2016
